FAERS Safety Report 9206248 (Version 1)
Quarter: 2013Q2

REPORT INFORMATION
  Report Type: Spontaneous
  Country: GB (occurrence: None)
  Receive Date: 20130401
  Receipt Date: 20130401
  Transmission Date: 20140414
  Serious: Yes (Life-Threatening)
  Sender: FDA-Public Use
  Company Number: 2013-05578

PATIENT
  Age: 60 Year
  Sex: Male

DRUGS (4)
  1. TRAMADOL HYDROCHLORIDE (TRAMADOL HYDROCHLORIDE) [Suspect]
     Indication: OSTEOARTHRITIS
     Route: 048
  2. PARACETAMOL [Concomitant]
  3. CODEINE PHOSPHATE [Concomitant]
  4. ETORICOXIB [Concomitant]

REACTIONS (19)
  - Akathisia [None]
  - Withdrawal syndrome [None]
  - Restless legs syndrome [None]
  - Somnolence [None]
  - Nausea [None]
  - Malaise [None]
  - Poor quality sleep [None]
  - Abdominal pain [None]
  - Diarrhoea [None]
  - Rhinorrhoea [None]
  - Tension [None]
  - Peripheral circulatory failure [None]
  - Peripheral coldness [None]
  - Sleep disorder [None]
  - Chills [None]
  - Hyperhidrosis [None]
  - Libido increased [None]
  - Anxiety [None]
  - Fear [None]
